FAERS Safety Report 5734255-8 (Version None)
Quarter: 2008Q2

REPORT INFORMATION
  Report Type: 
  Country: None (occurrence: None)
  Receive Date: 20080512
  Receipt Date: 20080508
  Transmission Date: 20081010
  Serious: Yes (Other)
  Sender: FDA-Public Use
  Company Number: BE-BAYER-200812657GPV

PATIENT
  Age: 60 Year
  Sex: Female

DRUGS (6)
  1. BETAFERON [Suspect]
     Indication: MULTIPLE SCLEROSIS
     Route: 058
     Dates: start: 20080109, end: 20080206
  2. BETAFERON [Suspect]
     Route: 058
  3. BETAFERON [Suspect]
     Route: 058
  4. BETAFERON [Suspect]
     Route: 058
     Dates: start: 20080206
  5. BETAFERON [Suspect]
     Route: 058
  6. PROZAC [Concomitant]
     Indication: DEPRESSION

REACTIONS (2)
  - DEPRESSION [None]
  - SUICIDAL IDEATION [None]
